FAERS Safety Report 14462144 (Version 2)
Quarter: 2018Q1

REPORT INFORMATION
  Report Type: Spontaneous
  Country: FR (occurrence: FR)
  Receive Date: 20180130
  Receipt Date: 20180302
  Transmission Date: 20180509
  Serious: Yes (Other)
  Sender: FDA-Public Use
  Company Number: FR-ALSI-201800053

PATIENT
  Age: 62 Year
  Sex: Male

DRUGS (1)
  1. MEDICINAL OXYGEN [Suspect]
     Active Substance: OXYGEN
     Indication: PRODUCT USED FOR UNKNOWN INDICATION
     Route: 055

REACTIONS (3)
  - Accident [Recovering/Resolving]
  - Burns third degree [Recovering/Resolving]
  - Intentional product misuse [Recovering/Resolving]

NARRATIVE: CASE EVENT DATE: 20180113
